FAERS Safety Report 8763795 (Version 1)
Quarter: 2012Q4

REPORT INFORMATION
  Report Type: Spontaneous
  Country: US (occurrence: None)
  Receive Date: 20120831
  Receipt Date: 20120831
  Transmission Date: 20130627
  Serious: Yes (Other)
  Sender: FDA-Public Use
  Company Number: None

PATIENT
  Age: 42 Year
  Sex: Female
  Weight: 77.11 kg

DRUGS (2)
  1. CYMBALTA [Suspect]
     Route: 048
     Dates: start: 20090601, end: 20120620
  2. CYMBALTA [Suspect]
     Route: 048
     Dates: start: 20120620, end: 20120720

REACTIONS (21)
  - Weight increased [None]
  - Blood pressure increased [None]
  - Hyperhidrosis [None]
  - Irritability [None]
  - Headache [None]
  - Insomnia [None]
  - Dizziness [None]
  - Tinnitus [None]
  - Insomnia [None]
  - Hepatic pain [None]
  - Mood swings [None]
  - Crying [None]
  - Pain [None]
  - Sinusitis [None]
  - Restless legs syndrome [None]
  - Anxiety [None]
  - Hypertension [None]
  - Nausea [None]
  - Amnesia [None]
  - Activities of daily living impaired [None]
  - Withdrawal syndrome [None]
